FAERS Safety Report 9575273 (Version 3)
Quarter: 2013Q4

REPORT INFORMATION
  Report Type: Spontaneous
  Country: US (occurrence: US)
  Receive Date: 20131001
  Receipt Date: 20131021
  Transmission Date: 20140711
  Serious: Yes (Hospitalization)
  Sender: FDA-Public Use
  Company Number: US-ACTELION-A-US2013-87432

PATIENT
  Age: 39 Year
  Sex: Female

DRUGS (2)
  1. VELETRI [Suspect]
     Indication: PULMONARY ARTERIAL HYPERTENSION
     Dosage: 7 NG/KG, PER MIN
     Route: 042
     Dates: start: 20130812
  2. COUMADIN [Concomitant]

REACTIONS (11)
  - Dehydration [Unknown]
  - Nausea [Unknown]
  - Vomiting [Recovering/Resolving]
  - Pain in extremity [Unknown]
  - Pain in jaw [Unknown]
  - Diarrhoea [Unknown]
  - Headache [Unknown]
  - Flushing [Unknown]
  - Dizziness [Unknown]
  - Application site rash [Unknown]
  - Application site pruritus [Unknown]
